FAERS Safety Report 22181273 (Version 2)
Quarter: 2023Q2

REPORT INFORMATION
  Report Type: Report from Study
  Country: US (occurrence: US)
  Receive Date: 20230406
  Receipt Date: 20230605
  Transmission Date: 20230722
  Serious: Yes (Other)
  Sender: FDA-Public Use
  Company Number: US-002147023-NVSC2023US074040

PATIENT
  Sex: Female
  Weight: 54.43 kg

DRUGS (4)
  1. COSENTYX [Suspect]
     Active Substance: SECUKINUMAB
     Indication: Psoriasis
     Dosage: UNK
     Route: 065
  2. MELOXICAM [Suspect]
     Active Substance: MELOXICAM
     Indication: Psoriasis
     Dosage: UNK
     Route: 065
  3. MELOXICAM [Suspect]
     Active Substance: MELOXICAM
     Indication: Arthralgia
  4. MELOXICAM [Suspect]
     Active Substance: MELOXICAM
     Indication: Intervertebral disc protrusion

REACTIONS (2)
  - Nephrolithiasis [Recovering/Resolving]
  - Treatment failure [Unknown]
